FAERS Safety Report 7568664-1 (Version None)
Quarter: 2011Q2

REPORT INFORMATION
  Report Type: 
  Country: None (occurrence: None)
  Receive Date: 20110623
  Receipt Date: 20110610
  Transmission Date: 20111010
  Serious: Yes (Death, Hospitalization, Other)
  Sender: FDA-Public Use
  Company Number: US-AMGEN-USASP2011030031

PATIENT
  Age: 48 Year
  Sex: Male

DRUGS (1)
  1. EPOGEN [Suspect]
     Indication: RENAL FAILURE CHRONIC
     Dates: end: 20110201

REACTIONS (8)
  - HYPERTENSION [None]
  - MALAISE [None]
  - SKIN ULCER [None]
  - CONVULSION [None]
  - RASH [None]
  - ASTHMA [None]
  - DEATH [None]
  - SWELLING [None]
